FAERS Safety Report 7648911-8 (Version None)
Quarter: 2011Q3

REPORT INFORMATION
  Report Type: 
  Country: None (occurrence: None)
  Receive Date: 20110801
  Receipt Date: 20110729
  Transmission Date: 20111222
  Serious: Yes (Hospitalization)
  Sender: FDA-Public Use
  Company Number: BE-ABBOTT-11P-013-0842355-00

PATIENT
  Sex: Female

DRUGS (3)
  1. ANTICHOLESTEROL [Concomitant]
     Indication: PRODUCT USED FOR UNKNOWN INDICATION
  2. ANTIHYPERTENSIVES [Concomitant]
     Indication: PRODUCT USED FOR UNKNOWN INDICATION
  3. HUMIRA [Suspect]
     Indication: PSORIASIS
     Dates: start: 20090701

REACTIONS (1)
  - VARICOSE VEIN [None]
